FAERS Safety Report 6641139-X (Version None)
Quarter: 2010Q1

REPORT INFORMATION
  Report Type: 
  Country: None (occurrence: None)
  Receive Date: 20100318
  Receipt Date: 20090305
  Transmission Date: 20100710
  Serious: No
  Sender: FDA-Public Use
  Company Number: US-ASTRAZENECA-2009UW05891

PATIENT
  Sex: Male
  Weight: 81.6 kg

DRUGS (5)
  1. ZESTRIL [Suspect]
     Indication: HYPERTENSION
     Route: 048
  2. ADVIL LIQUI-GELS [Concomitant]
  3. VITAMIN C [Concomitant]
  4. ASPIRIN [Concomitant]
  5. ALLEGRA [Concomitant]

REACTIONS (2)
  - BLOOD PROLACTIN INCREASED [None]
  - BLOOD TESTOSTERONE DECREASED [None]
